FAERS Safety Report 12735693 (Version 3)
Quarter: 2016Q4

REPORT INFORMATION
  Report Type: Spontaneous
  Country: JP (occurrence: JP)
  Receive Date: 20160912
  Receipt Date: 20161121
  Transmission Date: 20170207
  Serious: Yes (Hospitalization, Other)
  Sender: FDA-Public Use
  Company Number: JP-GLAXOSMITHKLINE-JP2016JPN125740

PATIENT
  Age: 90 Year
  Sex: Female
  Weight: 58 kg

DRUGS (10)
  1. LOXOPROFEN [Concomitant]
     Active Substance: LOXOPROFEN
     Dosage: UNK
  2. MEMARY [Concomitant]
     Active Substance: MEMANTINE HYDROCHLORIDE
     Dosage: UNK UNK, 1D
  3. MUCOSOLATE L [Concomitant]
     Dosage: UNK
  4. LIPITOR [Concomitant]
     Active Substance: ATORVASTATIN CALCIUM
     Dosage: UNK
  5. VALTREX [Suspect]
     Active Substance: VALACYCLOVIR HYDROCHLORIDE
     Indication: HERPES ZOSTER
     Dosage: 1000 MG, TID
     Route: 048
     Dates: start: 20160823, end: 20160825
  6. ALFACALCIDOL [Concomitant]
     Active Substance: ALFACALCIDOL
     Dosage: UNK
  7. VESICUM [Concomitant]
     Dosage: UNK
  8. DONEPEZIL HYDROCHLORIDE OD [Concomitant]
     Dosage: UNK UNK, 1D
  9. EFONIDIPINE HYDROCHLORIDE [Concomitant]
     Active Substance: EFONIDIPINE HYDROCHLORIDE
     Dosage: UNK
  10. ASPARA-CA [Concomitant]
     Active Substance: CALCIUM ASPARTATE
     Dosage: UNK

REACTIONS (8)
  - Hallucination [Unknown]
  - Depressed level of consciousness [Recovered/Resolved]
  - Anuria [Recovered/Resolved]
  - Confusional state [Recovered/Resolved]
  - Renal failure [Recovered/Resolved]
  - Acute kidney injury [Recovering/Resolving]
  - Toxic encephalopathy [Recovered/Resolved]
  - Decreased appetite [Unknown]

NARRATIVE: CASE EVENT DATE: 201608
